FAERS Safety Report 9481885 (Version 2)
Quarter: 2013Q3

REPORT INFORMATION
  Report Type: Spontaneous
  Country: US (occurrence: US)
  Receive Date: 20130828
  Receipt Date: 20130927
  Transmission Date: 20140515
  Serious: Yes (Hospitalization)
  Sender: FDA-Public Use
  Company Number: US-009507513-1308USA011301

PATIENT
  Age: 17 Year
  Sex: Female
  Weight: 57.6 kg

DRUGS (1)
  1. NEXPLANON [Suspect]
     Indication: CONTRACEPTION
     Dosage: 1 ROD /3 YEARS
     Route: 059
     Dates: start: 20121011, end: 20130128

REACTIONS (5)
  - Adverse event [Unknown]
  - Unintended pregnancy [Unknown]
  - Vomiting [Unknown]
  - Nausea [Unknown]
  - Vaginal haemorrhage [Unknown]
